FAERS Safety Report 10404571 (Version 1)
Quarter: 2014Q2

REPORT INFORMATION
  Report Type: Spontaneous
  Country: US (occurrence: None)
  Receive Date: 20140530
  Receipt Date: 20140530
  Transmission Date: 20141212
  Serious: Yes (Other)
  Sender: FDA-Public Use
  Company Number: AUR-APL-2014-02363

PATIENT
  Age: 17 Year
  Sex: Female

DRUGS (1)
  1. MONTELUKAST (MONTELUKAST) [Suspect]
     Indication: PRODUCT USED FOR UNKNOWN INDICATION

REACTIONS (3)
  - Anaphylactic reaction [None]
  - Angioedema [None]
  - Throat tightness [None]
